FAERS Safety Report 5001293-2 (Version None)
Quarter: 2006Q2

REPORT INFORMATION
  Report Type: 
  Country: None (occurrence: None)
  Receive Date: 20060512
  Receipt Date: 20060111
  Transmission Date: 20061013
  Serious: Yes (Hospitalization, Disabling)
  Sender: FDA-Public Use
  Company Number: US-MERCK-0601USA01333

PATIENT
  Age: 41 Year
  Sex: Male
  Weight: 82 kg

DRUGS (7)
  1. VIOXX [Suspect]
     Indication: ARTHRITIS
     Route: 048
     Dates: start: 20011106
  2. VIOXX [Suspect]
     Route: 048
     Dates: start: 20030309, end: 20031001
  3. ALLEGRA [Concomitant]
     Route: 065
  4. HYZAAR [Concomitant]
     Route: 065
  5. ACEON [Concomitant]
     Route: 065
  6. PREDNISONE [Concomitant]
     Route: 065
  7. VICODIN [Concomitant]
     Route: 065
     Dates: start: 20000901, end: 20040101

REACTIONS (4)
  - CEREBROVASCULAR ACCIDENT [None]
  - DEPRESSION [None]
  - HYPERTENSION [None]
  - SPINAL LAMINECTOMY [None]
